FAERS Safety Report 9899827 (Version 3)
Quarter: 2015Q3

REPORT INFORMATION
  Report Type: Spontaneous
  Country: US (occurrence: US)
  Receive Date: 20140214
  Receipt Date: 20150810
  Transmission Date: 20151125
  Serious: Yes (Other)
  Sender: FDA-Public Use
  Company Number: US-GILEAD-2011-0042099

PATIENT
  Age: 85 Year
  Sex: Female

DRUGS (1)
  1. LETAIRIS [Suspect]
     Active Substance: AMBRISENTAN
     Indication: PRODUCT USED FOR UNKNOWN INDICATION
     Dosage: 10 MG, UNK
     Route: 048
     Dates: start: 20110611, end: 20120412

REACTIONS (5)
  - Unevaluable event [Unknown]
  - Dizziness [Unknown]
  - Nausea [Unknown]
  - Myalgia [Unknown]
  - No therapeutic response [Unknown]

NARRATIVE: CASE EVENT DATE: 20120413
